FAERS Safety Report 25168414 (Version 1)
Quarter: 2025Q2

REPORT INFORMATION
  Report Type: Spontaneous
  Country: US (occurrence: US)
  Receive Date: 20250407
  Receipt Date: 20250407
  Transmission Date: 20250716
  Serious: No
  Sender: ELI LILLY AND CO
  Company Number: US-ELI_LILLY_AND_COMPANY-US202504005073

PATIENT
  Age: 53 Year
  Sex: Male

DRUGS (1)
  1. MOUNJARO [Suspect]
     Active Substance: TIRZEPATIDE
     Indication: Alcoholism
     Route: 058
     Dates: start: 2022

REACTIONS (16)
  - General physical health deterioration [Recovering/Resolving]
  - Glycosylated haemoglobin increased [Unknown]
  - Blood glucose increased [Recovering/Resolving]
  - Urinary incontinence [Recovering/Resolving]
  - Cerebral disorder [Recovering/Resolving]
  - Nasopharyngitis [Not Recovered/Not Resolved]
  - Impaired healing [Recovering/Resolving]
  - Hyperhidrosis [Recovering/Resolving]
  - Skin fissures [Recovering/Resolving]
  - Off label use [Unknown]
  - Dry throat [Recovering/Resolving]
  - COVID-19 [Recovering/Resolving]
  - Alopecia [Unknown]
  - Vertigo [Recovering/Resolving]
  - Vomiting [Recovering/Resolving]
  - Constipation [Recovering/Resolving]

NARRATIVE: CASE EVENT DATE: 20240801
